FAERS Safety Report 10237989 (Version 1)
Quarter: 2014Q2

REPORT INFORMATION
  Report Type: Spontaneous
  Country: US (occurrence: US)
  Receive Date: 20140616
  Receipt Date: 20140616
  Transmission Date: 20141212
  Serious: No
  Sender: FDA-Public Use
  Company Number: US-BIOGENIDEC-2014BI052918

PATIENT
  Age: 53 Year
  Sex: Female

DRUGS (1)
  1. TECFIDERA [Suspect]
     Indication: MULTIPLE SCLEROSIS
     Route: 048
     Dates: start: 20140502

REACTIONS (5)
  - Constipation [Unknown]
  - Oesophageal pain [Not Recovered/Not Resolved]
  - Memory impairment [Unknown]
  - Eructation [Not Recovered/Not Resolved]
  - Flushing [Unknown]
